FAERS Safety Report 11680070 (Version 2)
Quarter: 2015Q4

REPORT INFORMATION
  Report Type: Spontaneous
  Country: US (occurrence: US)
  Receive Date: 20151027
  Receipt Date: 20151104
  Transmission Date: 20160304
  Serious: No
  Sender: FDA-Public Use
  Company Number: US-ELI_LILLY_AND_COMPANY-US201001003333

PATIENT
  Age: 41 Year
  Sex: Female

DRUGS (3)
  1. FORTEO [Suspect]
     Active Substance: TERIPARATIDE
     Indication: OSTEOPOROSIS
     Dosage: 20 UG, DAILY (1/D)
     Dates: start: 20100112, end: 2010
  2. FORTEO [Suspect]
     Active Substance: TERIPARATIDE
     Dosage: 20 UG, DAILY (1/D)
     Dates: start: 2010
  3. FORTEO [Suspect]
     Active Substance: TERIPARATIDE
     Dosage: 20 UG, DAILY (1/D)

REACTIONS (14)
  - Back pain [Unknown]
  - Injection site pain [Unknown]
  - Rhinalgia [Unknown]
  - Bone pain [Unknown]
  - Malaise [Unknown]
  - Musculoskeletal pain [Unknown]
  - Product taste abnormal [Unknown]
  - Amenorrhoea [Recovered/Resolved]
  - Injection site reaction [Unknown]
  - Neck pain [Unknown]
  - Pain in extremity [Unknown]
  - Injection site erythema [Unknown]
  - Arthralgia [Unknown]
  - Injection site bruising [Not Recovered/Not Resolved]

NARRATIVE: CASE EVENT DATE: 201001
